FAERS Safety Report 7617571-4 (Version None)
Quarter: 2011Q3

REPORT INFORMATION
  Report Type: 
  Country: None (occurrence: None)
  Receive Date: 20110718
  Receipt Date: 20110706
  Transmission Date: 20111222
  Serious: Yes (Hospitalization)
  Sender: FDA-Public Use
  Company Number: NZ-RB-026951-11

PATIENT
  Age: 38 Year
  Sex: Female

DRUGS (1)
  1. MUCINEX [Suspect]
     Dosage: PATIENT TOOK THE PRODUCT MORNING AND NIGHT
     Route: 048

REACTIONS (1)
  - NEPHROLITHIASIS [None]
